FAERS Safety Report 17560707 (Version 1)
Quarter: 2020Q1

REPORT INFORMATION
  Report Type: Spontaneous
  Country: US (occurrence: US)
  Receive Date: 20200319
  Receipt Date: 20200319
  Transmission Date: 20200409
  Serious: Yes (Hospitalization)
  Sender: FDA-Public Use
  Company Number: None

PATIENT
  Age: 67 Year
  Sex: Male

DRUGS (4)
  1. ELIQUIS [Concomitant]
     Active Substance: APIXABAN
  2. VYNDAMAX [Suspect]
     Active Substance: TAFAMIDIS
     Indication: AMYLOIDOSIS
     Route: 048
     Dates: start: 20200129
  3. DOK [Concomitant]
     Active Substance: DOCUSATE SODIUM
  4. POT CL MICRO [Concomitant]

REACTIONS (2)
  - Therapy cessation [None]
  - Fluid retention [None]

NARRATIVE: CASE EVENT DATE: 20200312
